FAERS Safety Report 10524375 (Version 2)
Quarter: 2014Q4

REPORT INFORMATION
  Report Type: Spontaneous
  Country: JP (occurrence: JP)
  Receive Date: 20141017
  Receipt Date: 20141017
  Transmission Date: 20150528
  Serious: Yes (Hospitalization)
  Sender: FDA-Public Use
  Company Number: JP-JNJFOC-20140912524

PATIENT
  Sex: Female

DRUGS (7)
  1. FOSAMAX [Concomitant]
     Active Substance: ALENDRONATE SODIUM
     Route: 048
  2. FOLIAMIN [Concomitant]
     Active Substance: FOLIC ACID
     Route: 065
  3. PREDNISOLONE. [Concomitant]
     Active Substance: PREDNISOLONE
     Route: 065
  4. METOLATE [Concomitant]
     Active Substance: METHOTREXATE
     Route: 048
  5. ALFAROL [Concomitant]
     Active Substance: ALFACALCIDOL
     Route: 065
  6. SIMPONI [Suspect]
     Active Substance: GOLIMUMAB
     Indication: RHEUMATOID ARTHRITIS
     Route: 058
     Dates: start: 201112
  7. REBAMIPIDE [Concomitant]
     Active Substance: REBAMIPIDE
     Route: 065

REACTIONS (2)
  - Arthritis bacterial [Recovered/Resolved]
  - Post procedural infection [Recovered/Resolved]

NARRATIVE: CASE EVENT DATE: 20131021
